APPROVED DRUG PRODUCT: NITROMIST
Active Ingredient: NITROGLYCERIN
Strength: 0.4MG/SPRAY
Dosage Form/Route: AEROSOL, METERED;SUBLINGUAL
Application: N021780 | Product #001
Applicant: EVUS HEALTH SOLUTIONS LLC
Approved: Nov 2, 2006 | RLD: Yes | RS: Yes | Type: RX